FAERS Safety Report 10387187 (Version 3)
Quarter: 2016Q3

REPORT INFORMATION
  Report Type: Spontaneous
  Country: JP (occurrence: JP)
  Receive Date: 20140815
  Receipt Date: 20160720
  Transmission Date: 20161109
  Serious: Yes (Other)
  Sender: FDA-Public Use
  Company Number: PHHY2014JP096100

PATIENT
  Age: 19 Year
  Sex: Female

DRUGS (5)
  1. BISOPROLOL [Suspect]
     Active Substance: BISOPROLOL
     Indication: LONG QT SYNDROME
     Dosage: 20 MG, QD (0.3 MG/KG/DAY)
     Route: 065
  2. METOPROLOL. [Suspect]
     Active Substance: METOPROLOL
     Indication: LONG QT SYNDROME
     Dosage: 240 MG, QD (3.7 MG/KG/DAY)
     Route: 048
  3. VERAPAMIL [Concomitant]
     Active Substance: VERAPAMIL HYDROCHLORIDE
     Indication: PRODUCT USED FOR UNKNOWN INDICATION
     Dosage: 120 MG, QD (1.8 MG/ KG/DAY)
     Route: 065
  4. PROPRANOLOL [Concomitant]
     Active Substance: PROPRANOLOL\PROPRANOLOL HYDROCHLORIDE
     Dosage: 120 MG, QD (1.8 MG/ KG/DAY)
     Route: 065
  5. PROPRANOLOL [Concomitant]
     Active Substance: PROPRANOLOL\PROPRANOLOL HYDROCHLORIDE
     Indication: LONG QT SYNDROME
     Dosage: 90 MG, QD BASED ON 1.4 MG/KG/ DAY
     Route: 065

REACTIONS (4)
  - Drug ineffective [Unknown]
  - Torsade de pointes [Recovered/Resolved]
  - Electrocardiogram QT prolonged [Recovered/Resolved]
  - Electrocardiogram T wave abnormal [Recovered/Resolved]
